FAERS Safety Report 7277365-9 (Version None)
Quarter: 2011Q1

REPORT INFORMATION
  Report Type: 
  Country: None (occurrence: None)
  Receive Date: 20110207
  Receipt Date: 20110124
  Transmission Date: 20110831
  Serious: Yes (Hospitalization, Other)
  Sender: FDA-Public Use
  Company Number: AU-BAYER-201043286GPV

PATIENT
  Sex: Male
  Weight: 62 kg

DRUGS (14)
  1. SORAFENIB (RAF KINASE INHIBITOR) [Suspect]
     Indication: HEPATIC NEOPLASM MALIGNANT
     Dosage: 800 MG (DAILY DOSE), QD, ORAL
     Route: 048
     Dates: start: 20050914, end: 20101013
  2. DOMPERIDONE [Concomitant]
     Indication: DECREASED APPETITE
     Dosage: 30 MG (DAILY DOSE), QD, ORAL
     Route: 048
     Dates: start: 20100705
  3. DARBEPOETIN ALFA [Concomitant]
     Indication: NUTRITIONAL SUPPORT
     Dosage: 60 ?G (DAILY DOSE), OW, SUBCUTANEOUS
     Route: 058
     Dates: start: 20100901
  4. SORAFENIB (RAF KINASE INHIBITOR) [Suspect]
     Dosage: 400 MG (DAILY DOSE), QD, ORAL
     Route: 048
     Dates: start: 20101014, end: 20101014
  5. ADEFOVIR DIPIVOXIL KIT [Concomitant]
     Indication: HEPATITIS B
     Dosage: 10 MG (DAILY DOSE), QD, ORAL
     Route: 048
     Dates: start: 20030601
  6. FOLIC ACID [Concomitant]
     Indication: NUTRITIONAL SUPPORT
     Dosage: 0.5 MG (DAILY DOSE), QD, ORAL
     Route: 048
     Dates: start: 20100705
  7. ATACAND [Concomitant]
     Dosage: 16 MG (DAILY DOSE), QD, ORAL
     Route: 048
     Dates: start: 20020101
  8. FRUSEMIDE [Concomitant]
     Indication: OEDEMA PERIPHERAL
     Dosage: 80 MG (DAILY DOSE), QD, ORAL
     Route: 048
     Dates: start: 20100703
  9. SODIUM BICARBONATE [Concomitant]
     Indication: SUPPLEMENTATION THERAPY
     Dosage: 840 MG (DAILY DOSE), QD, ORAL
     Route: 048
     Dates: start: 20100917
  10. ATACAND [Concomitant]
     Indication: HYPERTENSION
     Dosage: 16 MG (DAILY DOSE), QD, ORAL
     Route: 048
     Dates: start: 20020101
  11. MULTI-VITAMINS [Concomitant]
     Indication: SUPPLEMENTATION THERAPY
     Route: 048
     Dates: start: 20100705
  12. FERROGRADUMET [Concomitant]
     Indication: NUTRITIONAL SUPPORT
     Dosage: 325 ?G (DAILY DOSE), QD, ORAL
     Route: 048
     Dates: start: 20100917
  13. LAMIVUDINE [Concomitant]
     Indication: HEPATITIS B
     Dosage: 25 MG (DAILY DOSE), QD, ORAL
     Route: 048
     Dates: start: 20091020
  14. INNER HEALTH PLUS [Concomitant]
     Indication: ELECTROLYTE SUBSTITUTION THERAPY
     Route: 048
     Dates: start: 20100705

REACTIONS (2)
  - WOUND [None]
  - IMPAIRED HEALING [None]
